FAERS Safety Report 10669479 (Version 1)
Quarter: 2014Q4

REPORT INFORMATION
  Report Type: Spontaneous
  Country: US (occurrence: US)
  Receive Date: 20141222
  Receipt Date: 20141222
  Transmission Date: 20150529
  Serious: Yes (Other)
  Sender: FDA-Public Use
  Company Number: US-SA-2014SA151341

PATIENT
  Age: 47 Year
  Sex: Female

DRUGS (1)
  1. AUBAGIO [Suspect]
     Active Substance: TERIFLUNOMIDE
     Indication: MULTIPLE SCLEROSIS
     Dosage: BY MOUTH
     Route: 048
     Dates: start: 20140115

REACTIONS (2)
  - Multiple sclerosis relapse [Unknown]
  - Alopecia [Unknown]

NARRATIVE: CASE EVENT DATE: 20141018
